FAERS Safety Report 8222357-6 (Version None)
Quarter: 2012Q1

REPORT INFORMATION
  Report Type: 
  Country: None (occurrence: None)
  Receive Date: 20120307
  Receipt Date: 20110602
  Transmission Date: 20120608
  Serious: Yes (Hospitalization)
  Sender: FDA-Public Use
  Company Number: PHHY2011US10840

PATIENT
  Age: 69 Year
  Sex: Female

DRUGS (16)
  1. ASCORBIC ACID [Concomitant]
  2. VITAMIN B6 [Concomitant]
  3. SENOKOT (SENNA, SENNA ALEXANDRINA) [Concomitant]
  4. PROTONIX [Concomitant]
  5. COUMADIN [Concomitant]
  6. AFINITOR [Suspect]
     Dosage: 10MG, QD
     Dates: start: 20110120
  7. MEGESTROL ACETATE [Concomitant]
  8. ZOMETA [Suspect]
     Indication: METASTASES TO BONE
  9. MIRALAX [Concomitant]
  10. METOPROLOL TARTRATE [Concomitant]
  11. OXYCONTIN [Concomitant]
  12. HYDROCOD-HOM [Concomitant]
  13. MULTIVITAMINS (ASCORBIC ACID, ERGOCALCIFEROL, FOLIC ACID, NICOTINAMIDE [Concomitant]
  14. CALCIUM WITH VITAMIN D (CALCIUM PHOSPHATE, CALCIUM SODIUM LACTATE, ERG [Concomitant]
  15. PREMARIN [Concomitant]
  16. LISINOPRIL [Concomitant]

REACTIONS (4)
  - DYSPNOEA [None]
  - PLATELET COUNT DECREASED [None]
  - HAEMOGLOBIN DECREASED [None]
  - HAEMATOCRIT DECREASED [None]
